FAERS Safety Report 5146444-4 (Version None)
Quarter: 2006Q4

REPORT INFORMATION
  Report Type: 
  Country: None (occurrence: None)
  Receive Date: 20061102
  Receipt Date: 20061018
  Transmission Date: 20070319
  Serious: Yes (Death)
  Sender: FDA-Public Use
  Company Number: 2006S1009816

PATIENT
  Age: 59 Year
  Sex: Male

DRUGS (4)
  1. CLOZAPINE [Suspect]
     Indication: SCHIZOPHRENIA
     Dosage: SEE IMAGE, PO
     Route: 048
     Dates: start: 20050201, end: 20060101
  2. CLOZAPINE [Suspect]
     Indication: SCHIZOPHRENIA
     Dosage: SEE IMAGE, PO
     Route: 048
     Dates: start: 20060201, end: 20060101
  3. BENZTROPINE MESYLATE [Concomitant]
  4. RISPERIDONE [Concomitant]

REACTIONS (1)
  - DEATH [None]
